FAERS Safety Report 4925915-7 (Version None)
Quarter: 2006Q1

REPORT INFORMATION
  Report Type: 
  Country: None (occurrence: None)
  Receive Date: 20060228
  Receipt Date: 20050414
  Transmission Date: 20060701
  Serious: Yes (Other)
  Sender: FDA-Public Use
  Company Number: US-GLAXOSMITHKLINE-A0554234A

PATIENT
  Sex: Female

DRUGS (3)
  1. LAMICTAL [Suspect]
     Indication: MIGRAINE
     Dosage: 50MG TWICE PER DAY
     Route: 048
  2. VERAPAMIL [Concomitant]
  3. TOPROL [Concomitant]

REACTIONS (1)
  - STEVENS-JOHNSON SYNDROME [None]
